FAERS Safety Report 9086579 (Version 2)
Quarter: 2013Q2

REPORT INFORMATION
  Report Type: Report from Study
  Country: CA (occurrence: CA)
  Receive Date: 20130217
  Receipt Date: 20130621
  Transmission Date: 20140414
  Serious: Yes (Hospitalization, Other)
  Sender: FDA-Public Use
  Company Number: CA-JNJFOC-20130115733

PATIENT
  Sex: Male
  Weight: 116.5 kg

DRUGS (13)
  1. REMICADE [Suspect]
     Indication: CROHN^S DISEASE
     Dosage: 44 INFUSIONS TILL DATE
     Route: 042
  2. CHOLESTYRAMINE [Concomitant]
     Route: 065
  3. VITAMIN B12 [Concomitant]
     Route: 065
  4. ZOVIRAX [Concomitant]
     Route: 065
  5. ZOPICLONE [Concomitant]
     Route: 065
  6. REACTINE [Concomitant]
     Route: 065
  7. AVAMYS [Concomitant]
     Route: 065
  8. RABEPRAZOLE [Concomitant]
     Route: 065
  9. LOMOTIL [Concomitant]
     Route: 065
  10. VENTOLIN [Concomitant]
     Route: 065
  11. VOLTAREN [Concomitant]
     Route: 065
  12. CALCIUM [Concomitant]
     Route: 065
  13. VITAMINS (NOS) [Concomitant]
     Route: 065

REACTIONS (2)
  - Goitre [Recovering/Resolving]
  - Sinusitis [Recovering/Resolving]
